FAERS Safety Report 4278137-X (Version None)
Quarter: 2004Q1

REPORT INFORMATION
  Report Type: 
  Country: None (occurrence: None)
  Receive Date: 20040121
  Receipt Date: 20040113
  Transmission Date: 20041129
  Serious: Yes (Life-Threatening, Hospitalization, Disabling)
  Sender: FDA-Public Use
  Company Number: CL-JNJFOC-20031100617

PATIENT
  Age: 70 Year
  Sex: Female

DRUGS (6)
  1. INFLIXIMAB (INFLIXIMAB, RECOMBINANT) LYOPHILIZED POWDER [Suspect]
     Indication: RHEUMATOID ARTHRITIS
     Dosage: 3 MG/KG, INTRAVENOUS
     Route: 042
     Dates: start: 20021223
  2. INFLIXIMAB (INFLIXIMAB, RECOMBINANT) LYOPHILIZED POWDER [Suspect]
     Indication: RHEUMATOID ARTHRITIS
     Dosage: 3 MG/KG, INTRAVENOUS
     Route: 042
     Dates: start: 20030917
  3. METHOTREXATE [Concomitant]
  4. PREDNISONE (NIFEDIPINE) [Concomitant]
  5. NIPHEDIPINO (NIFEDIPINE) [Concomitant]
  6. ATENOLOL [Concomitant]

REACTIONS (7)
  - DYSPNOEA [None]
  - INTESTINAL HAEMORRHAGE [None]
  - LUNG INFILTRATION [None]
  - MALAISE [None]
  - STAPHYLOCOCCAL INFECTION [None]
  - TACHYCARDIA [None]
  - TUBERCULOSIS [None]
